FAERS Safety Report 9024724 (Version 1)
Quarter: 2013Q1

REPORT INFORMATION
  Report Type: Spontaneous
  Country: US (occurrence: US)
  Receive Date: 20130121
  Receipt Date: 20130121
  Transmission Date: 20140127
  Serious: Yes (Hospitalization)
  Sender: FDA-Public Use
  Company Number: US-BIOGENIDEC-2013BI003732

PATIENT
  Age: 40 Year
  Sex: Female

DRUGS (2)
  1. AVONEX [Suspect]
     Indication: MULTIPLE SCLEROSIS
     Route: 030
     Dates: start: 20120917
  2. ZANAX [Concomitant]

REACTIONS (6)
  - Confusional state [Recovered/Resolved]
  - Central nervous system lesion [Not Recovered/Not Resolved]
  - Nasopharyngitis [Recovered/Resolved]
  - Sedation [Recovered/Resolved]
  - Euphoric mood [Recovered/Resolved]
  - Dizziness [Recovered/Resolved]
